FAERS Safety Report 4831825-6 (Version None)
Quarter: 2005Q4

REPORT INFORMATION
  Report Type: 
  Country: None (occurrence: None)
  Receive Date: 20051118
  Receipt Date: 20020501
  Transmission Date: 20060501
  Serious: Yes (Hospitalization)
  Sender: FDA-Public Use
  Company Number: US-BRISTOL-MYERS SQUIBB COMPANY-13172127

PATIENT

DRUGS (1)
  1. SERZONE [Suspect]

REACTIONS (1)
  - HEPATIC FAILURE [None]
